FAERS Safety Report 15230044 (Version 1)
Quarter: 2018Q3

REPORT INFORMATION
  Report Type: Spontaneous
  Country: US (occurrence: US)
  Receive Date: 20180802
  Receipt Date: 20180802
  Transmission Date: 20181010
  Serious: Yes (Other)
  Sender: FDA-Public Use
  Company Number: US-ACCORD-062877

PATIENT
  Age: 63 Year
  Sex: Female
  Weight: 86.18 kg

DRUGS (12)
  1. DOXORUBICIN [Concomitant]
     Active Substance: DOXORUBICIN
     Indication: BREAST CANCER
     Dosage: EVERY 3 WEEKS FOR 4 CYCLES,??DOSE: TOTAL OF 100 MG
     Route: 042
     Dates: start: 20120807
  2. CYTOXAN [Concomitant]
     Active Substance: CYCLOPHOSPHAMIDE
     Indication: BREAST CANCER
     Dosage: EVERY 3 WEEKS FOR 4 CYCLES,??FOR A TOTAL OF 1000 MG
     Dates: start: 20120807
  3. NEUPOGEN [Concomitant]
     Active Substance: FILGRASTIM
  4. COZAAR [Concomitant]
     Active Substance: LOSARTAN POTASSIUM
     Dosage: STRENGTH: 25 MG
     Route: 048
  5. DEXAMETHASONE. [Concomitant]
     Active Substance: DEXAMETHASONE
     Indication: PREMEDICATION
  6. NIZATIDINE. [Concomitant]
     Active Substance: NIZATIDINE
  7. PERCOCET [Concomitant]
     Active Substance: ACETAMINOPHEN\OXYCODONE HYDROCHLORIDE
     Dosage: STRENGTH: 5/325
     Route: 048
  8. DOCETAXEL ACCORD [Suspect]
     Active Substance: DOCETAXEL
     Indication: BREAST CANCER
     Dosage: STRENGTH: 80 MG/M2 FOR A TOTAL OF 140 MG INFUSED OVER 2 HOURS,??4 CYCLES FOR EVERY 3 WEEKS
     Route: 042
     Dates: start: 20121204, end: 20130219
  9. ZOFRAN [Concomitant]
     Active Substance: ONDANSETRON HYDROCHLORIDE
     Dates: end: 2011
  10. DIPHENHYDRAMINE. [Concomitant]
     Active Substance: DIPHENHYDRAMINE
  11. LOVAZA [Concomitant]
     Active Substance: OMEGA-3-ACID ETHYL ESTERS
     Dosage: STRENGTH: 1000 MG
     Route: 048
  12. CELECOXIB. [Concomitant]
     Active Substance: CELECOXIB

REACTIONS (1)
  - Alopecia [Not Recovered/Not Resolved]

NARRATIVE: CASE EVENT DATE: 201308
